FAERS Safety Report 15178066 (Version 1)
Quarter: 2018Q3

REPORT INFORMATION
  Report Type: Spontaneous
  Country: ES (occurrence: ES)
  Receive Date: 20180721
  Receipt Date: 20180721
  Transmission Date: 20181010
  Serious: Yes (Other)
  Sender: FDA-Public Use
  Company Number: ES-ABBVIE-18K-144-2426451-00

PATIENT
  Age: 49 Year
  Sex: Male

DRUGS (3)
  1. ISENTRESS [Concomitant]
     Active Substance: RALTEGRAVIR POTASSIUM
     Indication: HIV INFECTION
     Route: 048
     Dates: start: 20171130
  2. ABACAVIR + LAMIVUDIN [Concomitant]
     Active Substance: ABACAVIR\LAMIVUDINE
     Indication: HIV INFECTION
     Route: 048
     Dates: start: 20171130
  3. MAVIRET [Suspect]
     Active Substance: GLECAPREVIR\PIBRENTASVIR
     Indication: HEPATITIS C
     Route: 048
     Dates: start: 20180109, end: 20180305

REACTIONS (4)
  - Lipohypertrophy [Unknown]
  - Hypertriglyceridaemia [Unknown]
  - Headache [Unknown]
  - Lipoma [Unknown]

NARRATIVE: CASE EVENT DATE: 20180614
